FAERS Safety Report 10960135 (Version 1)
Quarter: 2015Q1

REPORT INFORMATION
  Report Type: Spontaneous
  Country: GB (occurrence: None)
  Receive Date: 20150325
  Receipt Date: 20150325
  Transmission Date: 20150721
  Serious: Yes (Death, Hospitalization)
  Sender: FDA-Public Use
  Company Number: FK201501388

PATIENT
  Age: 59 Year
  Sex: Male
  Weight: 127 kg

DRUGS (4)
  1. IRINOTECAN (MANUFACTURER UNKNOWN) (IRINOTECAN) (IRINOTECAN) [Suspect]
     Active Substance: IRINOTECAN
     Indication: COLORECTAL CANCER METASTATIC
     Dosage: 380 MG, 1 IN 1 CYCLICAL, INTRAVENOUS (NOT OTHERWISE SPECIFIED)
     Route: 042
     Dates: start: 20141001, end: 20141001
  2. FOLINIC ACID [Concomitant]
     Active Substance: LEUCOVORIN
  3. AFLIBERCEPT (AFLIBERCEPT) (AFLIBERCEPT) [Suspect]
     Active Substance: AFLIBERCEPT
     Indication: COLORECTAL CANCER METASTATIC
     Dosage: 4 MG/KG, 1 IN CYCLICAL, INTRAVENOUS (NOT OTHERWISE SPECIFIED)
     Route: 042
     Dates: start: 20141001, end: 20141001
  4. 5-FU (FLUOROURACIL) [Concomitant]
     Active Substance: FLUOROURACIL

REACTIONS (12)
  - Respiratory failure [None]
  - Dyspnoea [None]
  - Left ventricular hypertrophy [None]
  - Aortic arteriosclerosis [None]
  - Cardiomegaly [None]
  - Pulmonary haemorrhage [None]
  - Cerebral arteriosclerosis [None]
  - Arteriosclerosis coronary artery [None]
  - Pneumonitis [None]
  - Metastatic neoplasm [None]
  - Mitral valve disease [None]
  - Metastases to liver [None]

NARRATIVE: CASE EVENT DATE: 20141110
